FAERS Safety Report 8138591-X (Version None)
Quarter: 2012Q1

REPORT INFORMATION
  Report Type: 
  Country: None (occurrence: None)
  Receive Date: 20120215
  Receipt Date: 20120208
  Transmission Date: 20120608
  Serious: Yes (Hospitalization)
  Sender: FDA-Public Use
  Company Number: BR-SANOFI-AVENTIS-2012SA008548

PATIENT
  Age: 13 Year
  Sex: Male
  Weight: 43 kg

DRUGS (3)
  1. APIDRA [Suspect]
     Indication: TYPE 1 DIABETES MELLITUS
     Dosage: START DATE: 1 YEAR AND 2 MONTHS AGODOSE: ACCORDING TO GLYCEMIA
     Route: 065
  2. LANTUS [Suspect]
     Indication: TYPE 1 DIABETES MELLITUS
     Dosage: START DATE: 8MONTHS AGODOSE: 10IU AT LUNCH AND 18IU AT DINNER/DAY
     Route: 065
     Dates: start: 20110101
  3. CLIKSTAR [Suspect]
     Indication: DEVICE THERAPY

REACTIONS (3)
  - HYPERGLYCAEMIA [None]
  - DRUG ADMINISTRATION ERROR [None]
  - ACIDOSIS [None]
